FAERS Safety Report 6819134-7 (Version None)
Quarter: 2010Q2

REPORT INFORMATION
  Report Type: 
  Country: None (occurrence: None)
  Receive Date: 20100630
  Receipt Date: 20100622
  Transmission Date: 20101027
  Serious: Yes (Other)
  Sender: FDA-Public Use
  Company Number: 8049166

PATIENT
  Sex: Female
  Weight: 48.2 kg

DRUGS (9)
  1. CERTOLIZUMAB PEGOL [Suspect]
     Indication: CROHN'S DISEASE
     Dosage: (SUBCUTANEOUS)
     Route: 058
     Dates: start: 20090428, end: 20090910
  2. ULTRAM [Concomitant]
  3. METHOTREXATE [Concomitant]
  4. LOMOTIL [Concomitant]
  5. ZOFRAN [Concomitant]
  6. FOLIC ACID [Concomitant]
  7. CALCIUM [Concomitant]
  8. IRON [Concomitant]
  9. DIPHENOXYLATE [Concomitant]

REACTIONS (10)
  - ABDOMINAL PAIN [None]
  - ABORTION SPONTANEOUS [None]
  - BLIGHTED OVUM [None]
  - DRUG EXPOSURE DURING PREGNANCY [None]
  - NAUSEA [None]
  - NO THERAPEUTIC RESPONSE [None]
  - PREGNANCY [None]
  - SUPRAPUBIC PAIN [None]
  - UTERINE MALPOSITION [None]
  - VOMITING [None]
